FAERS Safety Report 7993242-X (Version None)
Quarter: 2011Q4

REPORT INFORMATION
  Report Type: 
  Country: None (occurrence: None)
  Receive Date: 20111219
  Receipt Date: 20110426
  Transmission Date: 20120403
  Serious: No
  Sender: FDA-Public Use
  Company Number: US-ASTRAZENECA-2011SE24305

PATIENT
  Age: 75 Year
  Sex: Female

DRUGS (1)
  1. CRESTOR [Suspect]
     Route: 048

REACTIONS (5)
  - MOBILITY DECREASED [None]
  - ARTHRALGIA [None]
  - JOINT STIFFNESS [None]
  - GAIT DISTURBANCE [None]
  - JOINT RANGE OF MOTION DECREASED [None]
